FAERS Safety Report 21110643 (Version 2)
Quarter: 2022Q3

REPORT INFORMATION
  Report Type: Spontaneous
  Country: DE (occurrence: DE)
  Receive Date: 20220721
  Receipt Date: 20220905
  Transmission Date: 20221026
  Serious: Yes (Other)
  Sender: FDA-Public Use
  Company Number: DE-NOVARTISPH-NVSC2022DE162820

PATIENT
  Age: 51 Year
  Sex: Male

DRUGS (2)
  1. OLANZAPINE [Suspect]
     Active Substance: OLANZAPINE
     Indication: Schizophrenia
     Dosage: 30 MG, QD (2 X15 MG)
     Route: 065
  2. TAVOR (LORAZEPAM) [Suspect]
     Active Substance: LORAZEPAM
     Indication: Schizophrenia
     Dosage: 3 MG, QD
     Route: 065

REACTIONS (4)
  - Intentional self-injury [Unknown]
  - Blindness [Unknown]
  - Headache [Unknown]
  - Incorrect dose administered [Unknown]
